FAERS Safety Report 24160755 (Version 1)
Quarter: 2024Q3

REPORT INFORMATION
  Report Type: Spontaneous
  Country: US (occurrence: None)
  Receive Date: 20240801
  Receipt Date: 20240801
  Transmission Date: 20241016
  Serious: No
  Sender: ASTRAZENECA
  Company Number: 2024A165949

PATIENT

DRUGS (1)
  1. TEZSPIRE [Suspect]
     Active Substance: TEZEPELUMAB-EKKO

REACTIONS (6)
  - Headache [Unknown]
  - Feeling abnormal [Unknown]
  - Discomfort [Unknown]
  - Pain [Unknown]
  - Pyrexia [Unknown]
  - Injection site pain [Unknown]
